FAERS Safety Report 11837539 (Version 8)
Quarter: 2016Q2

REPORT INFORMATION
  Report Type: Spontaneous
  Country: TW (occurrence: TW)
  Receive Date: 20151215
  Receipt Date: 20160503
  Transmission Date: 20160815
  Serious: Yes (Hospitalization)
  Sender: FDA-Public Use
  Company Number: TW-PFIZER INC-2015428679

PATIENT
  Sex: Male

DRUGS (2)
  1. SUTENT [Suspect]
     Active Substance: SUNITINIB MALATE
     Dosage: 37.5 MG, ONCE PER TWO DAYS
     Route: 048
     Dates: start: 20160105, end: 20160414
  2. SUTENT [Suspect]
     Active Substance: SUNITINIB MALATE
     Indication: RENAL CELL CARCINOMA
     Dosage: 50 MG, 1X/DAY
     Route: 048
     Dates: start: 20151124, end: 201512

REACTIONS (8)
  - Yellow skin [Recovered/Resolved]
  - Salivary gland calculus [Unknown]
  - Abdominal distension [Unknown]
  - Abscess of salivary gland [Recovered/Resolved]
  - Eyelid oedema [Recovered/Resolved]
  - Skin lesion [Recovered/Resolved]
  - Blood pressure increased [Unknown]
  - Weight increased [Unknown]

NARRATIVE: CASE EVENT DATE: 201512
